FAERS Safety Report 8198342 (Version 2)
Quarter: 2012Q4

REPORT INFORMATION
  Report Type: 
  Country: US (occurrence: US)
  Receive Date: 20111025
  Receipt Date: 20121012
  Transmission Date: 20130627
  Serious: Yes (Other)
  Sender: FDA-Public Use
  Company Number: US-US-EMD SERONO, INC.-7089641

PATIENT
  Sex: Male

DRUGS (1)
  1. REBIF [Suspect]
     Indication: VASCULITIS
     Route: 058
     Dates: start: 20110603, end: 201108

REACTIONS (1)
  - Vasculitis [Unknown]
